FAERS Safety Report 4304574-0 (Version None)
Quarter: 2004Q1

REPORT INFORMATION
  Report Type: 
  Country: None (occurrence: None)
  Receive Date: 20040224
  Receipt Date: 20001221
  Transmission Date: 20041129
  Serious: Yes (Life-Threatening, Hospitalization)
  Sender: FDA-Public Use
  Company Number: 0041

PATIENT
  Age: 34 Year
  Sex: Female

DRUGS (1)
  1. LEVONELLE-2 [Suspect]
     Indication: CONTRACEPTION
     Dosage: 2 TABS - ORAL
     Route: 048

REACTIONS (2)
  - COMPLICATIONS OF MATERNAL EXPOSURE TO THERAPEUTIC DRUGS [None]
  - ECTOPIC PREGNANCY [None]
